FAERS Safety Report 5926482-1 (Version None)
Quarter: 2008Q4

REPORT INFORMATION
  Report Type: 
  Country: None (occurrence: None)
  Receive Date: 20081022
  Receipt Date: 20081014
  Transmission Date: 20090506
  Serious: Yes (Hospitalization)
  Sender: FDA-Public Use
  Company Number: PHBS2008US06072

PATIENT
  Age: 45 Year
  Sex: Male

DRUGS (6)
  1. CYCLOSPORINE [Interacting]
     Indication: CORONARY ARTERY BYPASS
     Dosage: 150 MG, BID
     Route: 065
  2. METOPROLOL TARTRATE [Suspect]
     Dosage: 50 MG, BID
     Route: 065
  3. SIMVASTATIN [Interacting]
     Dosage: 80 MG/DAY
     Route: 065
  4. EZETIMIBE W/SIMVASTATIN [Interacting]
     Dosage: 10 MG/DAY
     Route: 065
  5. ASPIRIN [Suspect]
     Dosage: 81 MG/DAY
     Route: 065
  6. PREDNISONE [Suspect]
     Dosage: 20 MG/DAY
     Route: 065

REACTIONS (16)
  - ALANINE AMINOTRANSFERASE INCREASED [None]
  - ASPARTATE AMINOTRANSFERASE INCREASED [None]
  - BLOOD CREATINE PHOSPHOKINASE INCREASED [None]
  - BLOOD CREATININE INCREASED [None]
  - BLOOD PHOSPHORUS INCREASED [None]
  - BLOOD UREA INCREASED [None]
  - CHROMATURIA [None]
  - DRUG PRESCRIBING ERROR [None]
  - FATIGUE [None]
  - MUSCULAR WEAKNESS [None]
  - MYALGIA [None]
  - MYOCARDIAL INFARCTION [None]
  - MYOGLOBIN BLOOD INCREASED [None]
  - PAIN [None]
  - RENAL FAILURE [None]
  - RHABDOMYOLYSIS [None]
